FAERS Safety Report 9251268 (Version 1)
Quarter: 2013Q2

REPORT INFORMATION
  Report Type: Report from Study
  Country: CA (occurrence: CA)
  Receive Date: 20130424
  Receipt Date: 20130424
  Transmission Date: 20140414
  Serious: Yes (Other)
  Sender: FDA-Public Use
  Company Number: CA-JNJFOC-20130412689

PATIENT
  Sex: Male
  Weight: 95.26 kg

DRUGS (1)
  1. SIMPONI [Suspect]
     Indication: ANKYLOSING SPONDYLITIS
     Dates: end: 201211

REACTIONS (3)
  - Liver function test abnormal [Unknown]
  - Stress [Unknown]
  - Anxiety [Unknown]
